FAERS Safety Report 13833796 (Version 1)
Quarter: 2017Q3

REPORT INFORMATION
  Report Type: Spontaneous
  Country: GB (occurrence: GB)
  Receive Date: 20170804
  Receipt Date: 20170804
  Transmission Date: 20171127
  Serious: Yes (Other)
  Sender: FDA-Public Use
  Company Number: GB-BAYER-2017-148955

PATIENT
  Age: 79 Year
  Sex: Male
  Weight: 78 kg

DRUGS (11)
  1. AMITRIPTYLINE HYDROCHLORIDE. [Concomitant]
     Active Substance: AMITRIPTYLINE HYDROCHLORIDE
     Dosage: 1 DF, QD
     Dates: start: 20170718
  2. IBUPROFEN. [Concomitant]
     Active Substance: IBUPROFEN
     Dosage: 1 DF, TID
     Dates: start: 20170712
  3. PREDNISOLONE. [Concomitant]
     Active Substance: PREDNISOLONE
     Dosage: 6 DF, QD
     Dates: start: 20170509, end: 20170514
  4. COCODAMOL [Concomitant]
     Active Substance: ACETAMINOPHEN\CODEINE PHOSPHATE
     Dosage: 2 DF, QID
     Dates: start: 20170704, end: 20170711
  5. ALFUZOSIN [Concomitant]
     Active Substance: ALFUZOSIN
     Dosage: 1 DF, TID
     Dates: start: 20170509
  6. FOSTER [Concomitant]
     Active Substance: BECLOMETHASONE\FORMOTEROL
     Dosage: 2 DF, BID
     Dates: start: 20170206
  7. SALBUTAMOL [Concomitant]
     Active Substance: ALBUTEROL
     Dosage: UNK UNK, PRN
     Route: 045
     Dates: start: 20170206, end: 20170519
  8. ORAL REHYDRATION SALT [Concomitant]
     Dosage: 1 DF, PRN
     Dates: start: 20170726
  9. SOLIFENACIN [Concomitant]
     Active Substance: SOLIFENACIN
     Dosage: 1 DF, QD
     Dates: start: 20170206, end: 20170509
  10. NAPROXEN SODIUM ({= 220 MG) [Suspect]
     Active Substance: NAPROXEN SODIUM
     Dosage: UNK
     Dates: start: 20170726
  11. ZAPAIN [Concomitant]
     Active Substance: ACETAMINOPHEN\CODEINE PHOSPHATE
     Dosage: UNK
     Dates: start: 20170712

REACTIONS (1)
  - Diarrhoea haemorrhagic [Unknown]

NARRATIVE: CASE EVENT DATE: 20170726
